FAERS Safety Report 15402696 (Version 1)
Quarter: 2018Q3

REPORT INFORMATION
  Report Type: Spontaneous
  Country: US (occurrence: US)
  Receive Date: 20180917
  Receipt Date: 20180917
  Transmission Date: 20181010
  Serious: No
  Sender: FDA-Public Use
  Company Number: None

PATIENT
  Age: 33 Year
  Sex: Female
  Weight: 64.35 kg

DRUGS (5)
  1. LAMORTIGINE 200 MG TABLET/DAILY [Concomitant]
  2. DEXTROAMO?AMPHET ER 30MG CAP/DAILY [Concomitant]
  3. BURPOPION HCL XL 300 MG TABLET/DAILY [Concomitant]
  4. DEXTROAMP?AMPHET 30MG TAB/DAILY [Concomitant]
  5. DEXTROAMPHET SACCHARAT, AMPHET ASPARTATE, DEXTROAMPHET SULFATE AND AMPHET SULFAT [Suspect]
     Active Substance: AMPHETAMINE ASPARTATE\AMPHETAMINE SULFATE\DEXTROAMPHETAMINE SACCHARATE\DEXTROAMPHETAMINE SULFATE
     Indication: ATTENTION DEFICIT/HYPERACTIVITY DISORDER
     Dosage: ?          QUANTITY:1 TABLET(S);?
     Route: 048
     Dates: start: 20180906, end: 20180910

REACTIONS (6)
  - Product substitution issue [None]
  - Thinking abnormal [None]
  - Memory impairment [None]
  - Disturbance in attention [None]
  - Restlessness [None]
  - Paradoxical drug reaction [None]

NARRATIVE: CASE EVENT DATE: 20180906
